FAERS Safety Report 7950262-9 (Version None)
Quarter: 2011Q4

REPORT INFORMATION
  Report Type: 
  Country: None (occurrence: None)
  Receive Date: 20111130
  Receipt Date: 20111117
  Transmission Date: 20120403
  Serious: Yes (Hospitalization)
  Sender: FDA-Public Use
  Company Number: US-BAYER-2011-036331

PATIENT
  Age: 49 Year
  Sex: Female
  Weight: 77 kg

DRUGS (4)
  1. YASMIN [Suspect]
     Indication: ACNE
     Dosage: UNK
     Dates: start: 20010101, end: 20040601
  2. PROTONIX [Concomitant]
     Dosage: 40 MG, DAILY
  3. NORVASC [Concomitant]
     Dosage: 2.5 MG, DAILY
  4. TENORMIN [Concomitant]
     Dosage: 25 MG, DAILY

REACTIONS (3)
  - PAIN [None]
  - DEEP VEIN THROMBOSIS [None]
  - PULMONARY EMBOLISM [None]
